FAERS Safety Report 6146352-6 (Version None)
Quarter: 2009Q2

REPORT INFORMATION
  Report Type: 
  Country: None (occurrence: None)
  Receive Date: 20090407
  Receipt Date: 20090330
  Transmission Date: 20091009
  Serious: Yes (Other)
  Sender: FDA-Public Use
  Company Number: JP-PFIZER INC-2009191413

PATIENT

DRUGS (4)
  1. HALCION [Suspect]
     Route: 048
  2. SEROQUEL [Suspect]
  3. ABILIFY [Suspect]
  4. BIPERIDEN HYDROCHLORIDE TAB [Suspect]

REACTIONS (2)
  - LOSS OF CONSCIOUSNESS [None]
  - OPIATES POSITIVE [None]
